FAERS Safety Report 19096299 (Version 1)
Quarter: 2021Q2

REPORT INFORMATION
  Report Type: Spontaneous
  Country: CN (occurrence: CN)
  Receive Date: 20210406
  Receipt Date: 20210406
  Transmission Date: 20210717
  Serious: Yes (Other)
  Sender: FDA-Public Use
  Company Number: CN-PFIZER INC-2021338524

PATIENT
  Age: 85 Year
  Sex: Female
  Weight: 61.2 kg

DRUGS (1)
  1. LIPITOR [Suspect]
     Active Substance: ATORVASTATIN CALCIUM
     Indication: HYPERLIPIDAEMIA
     Dosage: 10 MG, 1X/DAY
     Route: 048
     Dates: start: 20210305, end: 20210307

REACTIONS (3)
  - Thrombosis [Unknown]
  - Myalgia [Recovering/Resolving]
  - Myoglobin blood increased [Unknown]

NARRATIVE: CASE EVENT DATE: 20210307
